FAERS Safety Report 7654034 (Version 3)
Quarter: 2013Q4

REPORT INFORMATION
  Report Type: Spontaneous
  Country: AU (occurrence: AU)
  Receive Date: 20101102
  Receipt Date: 20131127
  Transmission Date: 20140711
  Serious: Yes (Disabling, Other)
  Sender: FDA-Public Use
  Company Number: AU-PFIZER INC-2010135565

PATIENT
  Age: 43 Year
  Sex: Female

DRUGS (9)
  1. LYRICA [Suspect]
     Indication: COMPLEX REGIONAL PAIN SYNDROME
     Dosage: 75 MG, 2X/DAY
     Route: 048
  2. LYRICA [Suspect]
     Indication: COMPLEX REGIONAL PAIN SYNDROME
     Dosage: 75MG MORNING, 75MG MIDDAY, 150MG AT NIGHT
     Route: 048
  3. LYRICA [Suspect]
     Indication: NEURALGIA
  4. EFEXOR [Concomitant]
     Indication: PAIN
     Dosage: 225 MG, 1X/DAY IN THE MORNING
     Route: 048
  5. EFEXOR [Concomitant]
     Indication: DEPRESSION
  6. SEROQUEL [Concomitant]
     Indication: DEPRESSION
     Dosage: 50 MG, 1X/DAY AT NIGHT
  7. SEROQUEL [Concomitant]
     Indication: COMPLEX REGIONAL PAIN SYNDROME
  8. SEROQUEL [Concomitant]
     Indication: COMPLEX REGIONAL PAIN SYNDROME
  9. MOBIC [Concomitant]
     Indication: PAIN
     Dosage: 15 MG, UNK
     Route: 048

REACTIONS (7)
  - Abasia [Unknown]
  - Muscular weakness [Unknown]
  - Sedation [Recovered/Resolved]
  - Muscle spasms [Recovered/Resolved]
  - Tremor [Recovered/Resolved]
  - Dysgeusia [Recovered/Resolved]
  - Dry mouth [Recovered/Resolved]
